FAERS Safety Report 9120828 (Version 2)
Quarter: 2013Q3

REPORT INFORMATION
  Report Type: Spontaneous
  Country: FR (occurrence: FR)
  Receive Date: 20130226
  Receipt Date: 20130807
  Transmission Date: 20140515
  Serious: No
  Sender: FDA-Public Use
  Company Number: FR-ROCHE-1194627

PATIENT
  Age: 75 Year
  Sex: Female

DRUGS (8)
  1. XOLAIR [Suspect]
     Indication: ASTHMA
     Route: 058
     Dates: start: 20130118
  2. ATROVENT [Concomitant]
  3. SPIRIVA [Concomitant]
  4. FLIXOTIDE [Concomitant]
     Route: 065
     Dates: start: 2003
  5. FORADIL [Concomitant]
     Route: 065
     Dates: start: 2003
  6. AERIUS [Concomitant]
     Route: 065
     Dates: start: 2003
  7. EUPANTOL [Concomitant]
     Route: 065
     Dates: start: 2003
  8. SINGULAIR [Concomitant]
     Route: 065
     Dates: start: 2003

REACTIONS (1)
  - Age-related macular degeneration [Not Recovered/Not Resolved]
